FAERS Safety Report 5101224-0 (Version None)
Quarter: 2006Q3

REPORT INFORMATION
  Report Type: 
  Country: None (occurrence: None)
  Receive Date: 20060911
  Receipt Date: 20060829
  Transmission Date: 20061208
  Serious: Yes (Other)
  Sender: FDA-Public Use
  Company Number: 2006AC01587

PATIENT
  Age: 21 Year
  Sex: Male
  Weight: 80 kg

DRUGS (2)
  1. LIDOCAINE [Suspect]
     Indication: SPINAL ANAESTHESIA
     Dosage: DRUG NOT ADMINISTERED. INTENDED DOSE: 1ML 5%
  2. DIGOXIN [Suspect]
     Route: 037

REACTIONS (9)
  - ABDOMINAL DISTENSION [None]
  - AGITATION [None]
  - HYPERTENSION [None]
  - MONOPLEGIA [None]
  - NERVOUS SYSTEM DISORDER [None]
  - PARAESTHESIA [None]
  - TACHYCARDIA [None]
  - URINARY RETENTION [None]
  - WRONG DRUG ADMINISTERED [None]
